FAERS Safety Report 5579865-6 (Version None)
Quarter: 2007Q4

REPORT INFORMATION
  Report Type: 
  Country: None (occurrence: None)
  Receive Date: 20071130
  Receipt Date: 20070710
  Transmission Date: 20080405
  Serious: No
  Sender: FDA-Public Use
  Company Number: US200707002939

PATIENT
  Age: 62 Year
  Sex: Male

DRUGS (7)
  1. BYETTA [Suspect]
     Indication: TYPE 2 DIABETES MELLITUS
     Dosage: 5 UG, 2/D, SUBCUTANEOUS ; 10 UG, 2/D, SUBCUTANEOUS
     Route: 058
     Dates: end: 20070602
  2. BYETTA [Suspect]
     Indication: TYPE 2 DIABETES MELLITUS
     Dosage: 5 UG, 2/D, SUBCUTANEOUS ; 10 UG, 2/D, SUBCUTANEOUS
     Route: 058
     Dates: start: 20070603, end: 20070703
  3. BYETTA [Suspect]
     Dosage: 5 UG, 2/D, SUBCUTANEOUS
     Route: 058
     Dates: start: 20070710
  4. AMARYL [Concomitant]
  5. GLUCOVANCE [Concomitant]
  6. UNIRETIC (HYDROCHLOROTHIAZIDE, MOEXIPRIL HYDROCHLORIDE) [Concomitant]
  7. ADVICOR [Concomitant]

REACTIONS (13)
  - BLISTER [None]
  - DRY SKIN [None]
  - ERYTHEMA [None]
  - OEDEMA PERIPHERAL [None]
  - PAIN IN EXTREMITY [None]
  - PARAESTHESIA [None]
  - PRURITUS [None]
  - RASH [None]
  - SKIN BURNING SENSATION [None]
  - SKIN DISORDER [None]
  - SKIN HAEMORRHAGE [None]
  - SKIN LACERATION [None]
  - SLEEP DISORDER [None]
